FAERS Safety Report 4962001-4 (Version None)
Quarter: 2006Q2

REPORT INFORMATION
  Report Type: 
  Country: None (occurrence: None)
  Receive Date: 20060404
  Receipt Date: 20051117
  Transmission Date: 20061013
  Serious: Yes (Hospitalization, Disabling)
  Sender: FDA-Public Use
  Company Number: US-MERCK-0511USA03132

PATIENT
  Age: 40 Year
  Sex: Male
  Weight: 114 kg

DRUGS (4)
  1. VIOXX [Suspect]
     Indication: FIBULA FRACTURE
     Route: 048
     Dates: start: 20010919, end: 20020427
  2. VIOXX [Suspect]
     Indication: TIBIA FRACTURE
     Route: 048
     Dates: start: 20010919, end: 20020427
  3. ZOLOFT [Concomitant]
     Route: 065
  4. XANAX [Concomitant]
     Route: 065

REACTIONS (12)
  - CEREBRAL HAEMORRHAGE [None]
  - CEREBRAL INFARCTION [None]
  - CEREBROVASCULAR ACCIDENT [None]
  - DEEP VEIN THROMBOSIS [None]
  - DRUG SCREEN POSITIVE [None]
  - HYPOTHYROIDISM [None]
  - MAJOR DEPRESSION [None]
  - MITRAL VALVE INCOMPETENCE [None]
  - PAIN [None]
  - SKIN LACERATION [None]
  - TRICUSPID VALVE INCOMPETENCE [None]
  - VENTRICULAR HYPERTROPHY [None]
